FAERS Safety Report 19157714 (Version 1)
Quarter: 2021Q2

REPORT INFORMATION
  Report Type: Spontaneous
  Country: US (occurrence: US)
  Receive Date: 20210420
  Receipt Date: 20210420
  Transmission Date: 20210717
  Serious: Yes (Other)
  Sender: FDA-Public Use
  Company Number: US-BAYER-2021-122754

PATIENT
  Age: 66 Year
  Sex: Male

DRUGS (1)
  1. BAYER LOW DOSE [Suspect]
     Active Substance: ASPIRIN
     Indication: CARDIAC DISORDER
     Dosage: 81 MG
     Dates: start: 20210412

REACTIONS (8)
  - Sneezing [None]
  - Insomnia [None]
  - Head discomfort [None]
  - Rhinorrhoea [None]
  - Angina pectoris [Recovered/Resolved]
  - Sinus congestion [None]
  - Eye irritation [None]
  - Ocular hyperaemia [None]
